FAERS Safety Report 7070607-4 (Version None)
Quarter: 2010Q4

REPORT INFORMATION
  Report Type: 
  Country: None (occurrence: None)
  Receive Date: 20101027
  Receipt Date: 20101027
  Transmission Date: 20110411
  Serious: No
  Sender: FDA-Public Use
  Company Number: None

PATIENT
  Age: 5 Month
  Sex: Female
  Weight: 6.3504 kg

DRUGS (1)
  1. HYLANDS TEETHING TABLETS 125 TABLETS HOMEOPATHIC [Suspect]
     Indication: TEETHING
     Dosage: 2 TABLETS DISSOLVED IN WATER TWICE A DAY PO
     Route: 048
     Dates: start: 20100920, end: 20100924

REACTIONS (3)
  - ABDOMINAL PAIN UPPER [None]
  - BLISTER [None]
  - RASH [None]
